FAERS Safety Report 10159525 (Version 1)
Quarter: 2014Q2

REPORT INFORMATION
  Report Type: Spontaneous
  Country: FR (occurrence: FR)
  Receive Date: 20140508
  Receipt Date: 20140508
  Transmission Date: 20141212
  Serious: Yes (Hospitalization)
  Sender: FDA-Public Use
  Company Number: FR-ABBVIE-14K-056-1234666-00

PATIENT
  Age: 62 Year
  Sex: Female

DRUGS (5)
  1. DEPAKINE [Suspect]
     Indication: EPILEPSY
     Route: 048
     Dates: start: 1993, end: 201307
  2. KEPPRA [Concomitant]
     Indication: PRODUCT USED FOR UNKNOWN INDICATION
  3. TEGRETOL [Concomitant]
     Indication: PRODUCT USED FOR UNKNOWN INDICATION
  4. URBANYL [Concomitant]
     Indication: PRODUCT USED FOR UNKNOWN INDICATION
  5. MOTILIUM [Concomitant]
     Indication: PRODUCT USED FOR UNKNOWN INDICATION

REACTIONS (2)
  - Cognitive disorder [Recovered/Resolved]
  - Abnormal behaviour [Recovered/Resolved]
